FAERS Safety Report 17549352 (Version 1)
Quarter: 2020Q1

REPORT INFORMATION
  Report Type: Spontaneous
  Country: US (occurrence: US)
  Receive Date: 20200309
  Receipt Date: 20200309
  Transmission Date: 20200409
  Serious: No
  Sender: FDA-Public Use
  Company Number: None

PATIENT
  Age: 50 Year

DRUGS (9)
  1. URSODIOL. [Concomitant]
     Active Substance: URSODIOL
  2. AZATHIOPRINE. [Concomitant]
     Active Substance: AZATHIOPRINE
  3. FENOFIBRATE. [Concomitant]
     Active Substance: FENOFIBRATE
  4. VITAMIN D [Concomitant]
     Active Substance: VITAMIN D NOS
  5. CETIRIZINE [Concomitant]
     Active Substance: CETIRIZINE HYDROCHLORIDE
  6. FERROUS SULF [Concomitant]
     Active Substance: FERROUS SULFATE
  7. OCALIVA [Suspect]
     Active Substance: OBETICHOLIC ACID
     Indication: PRIMARY BILIARY CHOLANGITIS
     Route: 048
     Dates: start: 20180817
  8. FUOSUL [Concomitant]
  9. HAIR SKIN NAIL TAB [Concomitant]

REACTIONS (2)
  - Rash [None]
  - Pruritus [None]
